FAERS Safety Report 6546045-7 (Version None)
Quarter: 2010Q1

REPORT INFORMATION
  Report Type: 
  Country: None (occurrence: None)
  Receive Date: 20100119
  Receipt Date: 20100104
  Transmission Date: 20100710
  Serious: Yes (Death, Hospitalization)
  Sender: FDA-Public Use
  Company Number: 2009AC000021

PATIENT
  Age: 57 Year
  Sex: Male

DRUGS (64)
  1. DIGOXIN [Suspect]
     Indication: CARDIAC DISORDER
     Dosage: 0.125 MG;QD;UNKNOWN
     Dates: start: 19961012
  2. ACTOS [Concomitant]
  3. ASPIRIN [Concomitant]
  4. AZITHROMYCIN [Concomitant]
  5. CEPHALEXINI [Concomitant]
  6. FUROSEMIDE [Concomitant]
  7. METOCLOPRAMIDE [Concomitant]
  8. NOVOLOG [Concomitant]
  9. CARVEDILOL [Concomitant]
  10. ALBUTEROL [Concomitant]
  11. PLAVIX [Concomitant]
  12. RANITIDINE [Concomitant]
  13. SINGULAIR [Concomitant]
  14. SPIRONOLACTONE [Concomitant]
  15. LIPITOR [Concomitant]
  16. LANTUS [Concomitant]
  17. INDOMETHACIN [Concomitant]
  18. PRECOSE [Concomitant]
  19. ZAROXOLYN [Concomitant]
  20. DEMADEX [Concomitant]
  21. K-DUR [Concomitant]
  22. ZOCOR [Concomitant]
  23. AMIODARONE [Concomitant]
  24. ZESTRIL [Concomitant]
  25. MAG OXIDE [Concomitant]
  26. LORCET-HD [Concomitant]
  27. LYSINE [Concomitant]
  28. CIPRO [Concomitant]
  29. QUINAGLUTE [Concomitant]
  30. NORVASC [Concomitant]
  31. CATAPRES [Concomitant]
  32. FOLATE [Concomitant]
  33. INSULIN [Concomitant]
  34. CALAN [Concomitant]
  35. ALDACTONE [Concomitant]
  36. COREG [Concomitant]
  37. HUMULIN R [Concomitant]
  38. HYDRALAZINE [Concomitant]
  39. ZANTAC [Concomitant]
  40. LORTAB [Concomitant]
  41. ACARBOSE [Concomitant]
  42. PLAVIX [Concomitant]
  43. ECOTRIN [Concomitant]
  44. HYDRALAZINE [Concomitant]
  45. REGLAN [Concomitant]
  46. PRECOSE [Concomitant]
  47. NOVOLIN [Concomitant]
  48. MAGNESIUM [Concomitant]
  49. SULAR [Concomitant]
  50. ZESTRIL [Concomitant]
  51. IMDUR [Concomitant]
  52. NITROGLYCERIN [Concomitant]
  53. ZANTAC [Concomitant]
  54. SULAR [Concomitant]
  55. AVANDIA [Concomitant]
  56. IMDUR [Concomitant]
  57. PRECOSE [Concomitant]
  58. HYTRIN [Concomitant]
  59. REGLAN [Concomitant]
  60. LIPITOR [Concomitant]
  61. ASPIRIN [Concomitant]
  62. HYZAAR [Concomitant]
  63. HUMULIN R [Concomitant]
  64. KEFLEX [Concomitant]

REACTIONS (29)
  - ANXIETY [None]
  - ASTHENIA [None]
  - BRONCHITIS [None]
  - CARDIOMYOPATHY [None]
  - CELLULITIS [None]
  - CONSTIPATION [None]
  - CORONARY ARTERIAL STENT INSERTION [None]
  - CORONARY ARTERY DISEASE [None]
  - DIABETES MELLITUS [None]
  - DISCOMFORT [None]
  - DYSPEPSIA [None]
  - ELECTROMECHANICAL DISSOCIATION [None]
  - GASTROINTESTINAL DISORDER [None]
  - HAEMATOCRIT DECREASED [None]
  - HAEMOGLOBIN DECREASED [None]
  - HYPERHIDROSIS [None]
  - HYPERLIPIDAEMIA [None]
  - OROPHARYNGEAL PAIN [None]
  - PAIN [None]
  - PRESYNCOPE [None]
  - PRODUCTIVE COUGH [None]
  - RECTAL HAEMORRHAGE [None]
  - RENAL FAILURE [None]
  - SINUSITIS [None]
  - SWELLING [None]
  - THROAT IRRITATION [None]
  - UNRESPONSIVE TO STIMULI [None]
  - UPPER RESPIRATORY TRACT CONGESTION [None]
  - VENTRICULAR FIBRILLATION [None]
